FAERS Safety Report 5844927-2 (Version None)
Quarter: 2008Q3

REPORT INFORMATION
  Report Type: 
  Country: None (occurrence: None)
  Receive Date: 20080812
  Receipt Date: 20080728
  Transmission Date: 20090109
  Serious: Yes (Hospitalization)
  Sender: FDA-Public Use
  Company Number: 100#08#2008-03824

PATIENT
  Age: 3 Year
  Sex: Female

DRUGS (4)
  1. COTRIMOXAZOLE (SULFAMETOXAZOLE, TRIMETHOPRIM) [Suspect]
     Indication: DIARRHOEA
     Dates: start: 20051201
  2. COTRIMOXAZOLE (SULFAMETOXAZOLE, TRIMETHOPRIM) [Suspect]
     Indication: OCULAR ICTERUS
     Dates: start: 20051201
  3. CEFIXIME CHEWABLE [Concomitant]
     Indication: DIARRHOEA
     Dates: start: 20051201
  4. CEFIXIME CHEWABLE [Concomitant]
     Indication: OCULAR ICTERUS
     Dates: start: 20051201

REACTIONS (4)
  - DRUG RASH WITH EOSINOPHILIA AND SYSTEMIC SYMPTOMS [None]
  - HEPATITIS A [None]
  - RENAL FAILURE ACUTE [None]
  - TUBULOINTERSTITIAL NEPHRITIS [None]
